FAERS Safety Report 9414512 (Version 2)
Quarter: 2013Q3

REPORT INFORMATION
  Report Type: Spontaneous
  Country: IT (occurrence: IT)
  Receive Date: 20130717
  Receipt Date: 20130806
  Transmission Date: 20140515
  Serious: Yes (Life-Threatening)
  Sender: FDA-Public Use
  Company Number: IT-ALSI-201300185

PATIENT
  Age: 65 Year
  Sex: Female

DRUGS (1)
  1. OSSIGENO AIR LIQUIDE SANITA 200 BAR GAS MEDICINALE COMPRESSO [Suspect]
     Indication: PRODUCT USED FOR UNKNOWN INDICATION
     Dosage: RESPIRATORY
     Dates: start: 20130702, end: 20130702

REACTIONS (3)
  - Device failure [None]
  - Underdose [None]
  - Hypoxia [None]
